FAERS Safety Report 17920868 (Version 3)
Quarter: 2025Q3

REPORT INFORMATION
  Report Type: Spontaneous
  Country: EU (occurrence: EU)
  Receive Date: 20200622
  Receipt Date: 20250828
  Transmission Date: 20251021
  Serious: Yes (Hospitalization, Other)
  Sender: AUROBINDO
  Company Number: EU-ASTELLAS-2020US020325

PATIENT
  Age: 16 Year
  Sex: Male

DRUGS (1)
  1. AMOXICILLIN [Suspect]
     Active Substance: AMOXICILLIN
     Indication: Upper respiratory tract infection
     Route: 065

REACTIONS (11)
  - Pneumomediastinum [Unknown]
  - Oropharyngeal pain [Unknown]
  - Acute interstitial pneumonitis [Unknown]
  - Cough [Unknown]
  - Fibromatosis colli of infancy [Unknown]
  - Chest pain [Unknown]
  - Blood creatine phosphokinase increased [Unknown]
  - Pneumothorax [Unknown]
  - Neck pain [Unknown]
  - Oropharyngeal discomfort [Unknown]
  - Subcutaneous emphysema [Recovered/Resolved]
